FAERS Safety Report 13335708 (Version 3)
Quarter: 2018Q1

REPORT INFORMATION
  Report Type: Spontaneous
  Country: US (occurrence: US)
  Receive Date: 20170314
  Receipt Date: 20180131
  Transmission Date: 20180508
  Serious: Yes (Death, Hospitalization, Other)
  Sender: FDA-Public Use
  Company Number: US-MYLANLABS-2017M1015972

PATIENT
  Age: 55 Year
  Sex: Male

DRUGS (3)
  1. CLOZAPINE. [Suspect]
     Active Substance: CLOZAPINE
     Indication: SCHIZOAFFECTIVE DISORDER BIPOLAR TYPE
     Dosage: 400 MG, BID
  2. QUETIAPINE. [Suspect]
     Active Substance: QUETIAPINE
     Indication: SCHIZOAFFECTIVE DISORDER BIPOLAR TYPE
     Dosage: 400 MG, QD
  3. BENZTROPINE [Suspect]
     Active Substance: BENZTROPINE
     Indication: PRODUCT USED FOR UNKNOWN INDICATION
     Dosage: 0.5 MG, UNK

REACTIONS (11)
  - Gastric dilatation [Fatal]
  - Abdominal pain [Unknown]
  - Bradycardia [Unknown]
  - Faecaloma [Fatal]
  - Vomiting [Unknown]
  - Aspiration [Fatal]
  - Treatment failure [Unknown]
  - Cardio-respiratory arrest [Fatal]
  - Tachycardia [Unknown]
  - Diet refusal [Unknown]
  - Unresponsive to stimuli [Unknown]
